FAERS Safety Report 13841088 (Version 1)
Quarter: 2017Q3

REPORT INFORMATION
  Report Type: Spontaneous
  Country: US (occurrence: US)
  Receive Date: 20170807
  Receipt Date: 20170807
  Transmission Date: 20171127
  Serious: No
  Sender: FDA-Public Use
  Company Number: US-BAYER-2017-144501

PATIENT
  Age: 17 Year
  Sex: Female
  Weight: 49 kg

DRUGS (4)
  1. MENSTRIDOL [Suspect]
     Active Substance: NAPROXEN SODIUM
     Indication: DYSMENORRHOEA
  2. MENSTRIDOL [Suspect]
     Active Substance: NAPROXEN SODIUM
     Indication: BACK PAIN
     Dosage: UNK
     Route: 048
  3. MIDOL COMPLETE [Suspect]
     Active Substance: ACETAMINOPHEN\CAFFEINE\PYRILAMINE MALEATE
     Indication: BACK PAIN
     Dosage: 2 DF, EVERY 6 HOURS
     Route: 048
     Dates: start: 2016, end: 2016
  4. MIDOL COMPLETE [Suspect]
     Active Substance: ACETAMINOPHEN\CAFFEINE\PYRILAMINE MALEATE
     Indication: DYSMENORRHOEA

REACTIONS (2)
  - Drug effect incomplete [Unknown]
  - Drug ineffective [Unknown]

NARRATIVE: CASE EVENT DATE: 2016
